FAERS Safety Report 9483116 (Version 1)
Quarter: 2013Q3

REPORT INFORMATION
  Report Type: Spontaneous
  Country: US (occurrence: US)
  Receive Date: 20130828
  Receipt Date: 20130828
  Transmission Date: 20140515
  Serious: Yes (Other)
  Sender: FDA-Public Use
  Company Number: US-AMGEN-US139216

PATIENT
  Age: 56 Year
  Sex: Female

DRUGS (3)
  1. ENBREL [Suspect]
     Indication: RHEUMATOID ARTHRITIS
     Dosage: 50 MG, QWK
     Route: 065
  2. METHOTREXATE [Concomitant]
  3. NSAIDS [Concomitant]

REACTIONS (5)
  - Cardiac disorder [Unknown]
  - Chest pain [Unknown]
  - Anxiety [Unknown]
  - Fibromyalgia [Unknown]
  - Nodule [Unknown]
